FAERS Safety Report 17062359 (Version 1)
Quarter: 2019Q4

REPORT INFORMATION
  Report Type: Spontaneous
  Country: CZ (occurrence: CZ)
  Receive Date: 20191122
  Receipt Date: 20191122
  Transmission Date: 20200122
  Serious: Yes (Other)
  Sender: FDA-Public Use
  Company Number: CZ-US-PROVELL PHARMACEUTICALS LLC-9129869

PATIENT
  Age: 75 Year
  Sex: Female
  Weight: 124 kg

DRUGS (3)
  1. SANGONA [Concomitant]
     Indication: BLOOD PRESSURE INCREASED
  2. LOKREN [Concomitant]
     Active Substance: BETAXOLOL HYDROCHLORIDE
     Indication: BLOOD PRESSURE INCREASED
  3. EUTHYROX [Suspect]
     Active Substance: LEVOTHYROXINE SODIUM
     Indication: POST PROCEDURAL HYPOTHYROIDISM
     Route: 048

REACTIONS (7)
  - Cholelithiasis [Unknown]
  - Lymphatic disorder [Unknown]
  - Gait disturbance [Unknown]
  - Weight increased [Not Recovered/Not Resolved]
  - Limb discomfort [Unknown]
  - Nephrolithiasis [Not Recovered/Not Resolved]
  - Impaired work ability [Unknown]
